FAERS Safety Report 5060460-2 (Version None)
Quarter: 2006Q3

REPORT INFORMATION
  Report Type: 
  Country: None (occurrence: None)
  Receive Date: 20060721
  Receipt Date: 20060721
  Transmission Date: 20061208
  Serious: Yes (Hospitalization)
  Sender: FDA-Public Use
  Company Number: None

PATIENT
  Age: 74 Year
  Sex: Male
  Weight: 86 kg

DRUGS (1)
  1. TRETINOIN [Suspect]
     Indication: ACUTE PROMYELOCYTIC LEUKAEMIA
     Dosage: 30 MG TID PO
     Route: 048
     Dates: start: 20060325, end: 20060406

REACTIONS (3)
  - PLEURAL EFFUSION [None]
  - RETINOIC ACID SYNDROME [None]
  - WEIGHT INCREASED [None]
